FAERS Safety Report 24445099 (Version 1)
Quarter: 2024Q4

REPORT INFORMATION
  Report Type: Spontaneous
  Country: US (occurrence: US)
  Receive Date: 20241016
  Receipt Date: 20241016
  Transmission Date: 20250115
  Serious: No
  Sender: SANDOZ
  Company Number: US-002147023-NVSC2024US032603

PATIENT
  Sex: Female

DRUGS (1)
  1. COMBIPATCH [Suspect]
     Active Substance: ESTRADIOL\NORETHINDRONE ACETATE
     Indication: Product used for unknown indication
     Dosage: UNK,(0.05/0.14 MG)
     Route: 062
     Dates: start: 202312

REACTIONS (2)
  - Urinary incontinence [Unknown]
  - Therapeutic product ineffective [Not Recovered/Not Resolved]
